FAERS Safety Report 14434080 (Version 1)
Quarter: 2018Q1

REPORT INFORMATION
  Report Type: Spontaneous
  Country: US (occurrence: US)
  Receive Date: 20180124
  Receipt Date: 20180124
  Transmission Date: 20180509
  Serious: No
  Sender: FDA-Public Use
  Company Number: US-ABBVIE-17K-163-1834783-00

PATIENT
  Age: 54 Year
  Sex: Female

DRUGS (1)
  1. ADALIMUMAB [Suspect]
     Active Substance: ADALIMUMAB
     Indication: PRODUCT USED FOR UNKNOWN INDICATION
     Route: 058

REACTIONS (6)
  - Drug effect incomplete [Unknown]
  - Hyperkeratosis follicularis et parafollicularis [Unknown]
  - Acantholysis [Unknown]
  - Pityriasis rubra pilaris [Unknown]
  - Parakeratosis [Unknown]
  - Oral hyperkeratosis [Unknown]
